FAERS Safety Report 7880795-5 (Version None)
Quarter: 2011Q4

REPORT INFORMATION
  Report Type: 
  Country: None (occurrence: None)
  Receive Date: 20111101
  Receipt Date: 20111018
  Transmission Date: 20120403
  Serious: Yes (Death, Hospitalization, Other)
  Sender: FDA-Public Use
  Company Number: JP-PFIZER INC-2011266104

PATIENT
  Age: 81 Year
  Sex: Male

DRUGS (4)
  1. ARGATROBAN [Suspect]
     Indication: EMBOLIC STROKE
     Dosage: UNK
     Route: 042
     Dates: start: 20100812, end: 20100812
  2. EDARAVONE [Suspect]
     Indication: EMBOLIC STROKE
     Dosage: 30 MG, 2X/DAY
     Route: 042
     Dates: start: 20100812, end: 20100825
  3. ANGIOTENSIN II ANTAGONISTS [Concomitant]
     Indication: HYPERTENSION
  4. WARFARIN [Concomitant]
     Indication: EMBOLIC STROKE
     Dosage: UNK
     Route: 048
     Dates: start: 20100813, end: 20110813

REACTIONS (3)
  - HAEMORRHAGIC INFARCTION [None]
  - CEREBRAL INFARCTION [None]
  - GASTROINTESTINAL HAEMORRHAGE [None]
